FAERS Safety Report 21892521 (Version 1)
Quarter: 2023Q1

REPORT INFORMATION
  Report Type: Spontaneous
  Country: US (occurrence: US)
  Receive Date: 20230120
  Receipt Date: 20230120
  Transmission Date: 20230418
  Serious: No
  Sender: FDA-Public Use
  Company Number: US-BAYER-2023P004093

PATIENT
  Age: 39 Year
  Sex: Female

DRUGS (9)
  1. BETASERON [Suspect]
     Active Substance: INTERFERON BETA-1B
     Indication: Product used for unknown indication
  2. VITAMIN D3 [Concomitant]
     Active Substance: CHOLECALCIFEROL
  3. TIZANIDINE [Concomitant]
     Active Substance: TIZANIDINE
  4. TRAMADOL [Concomitant]
     Active Substance: TRAMADOL
  5. CHOLECALCIFEROL [Concomitant]
     Active Substance: CHOLECALCIFEROL
  6. DULOXETINE [Concomitant]
     Active Substance: DULOXETINE
  7. HYDROXYZINE [Concomitant]
     Active Substance: HYDROXYZINE HYDROCHLORIDE
  8. TRIAMCINOLONE ACETONIDE [Concomitant]
     Active Substance: TRIAMCINOLONE ACETONIDE
  9. THERAPEUTIC MULTIVITAMIN [ASCORBIC ACID;CALCIUM PANTOTHENATE;CYANO [Concomitant]

REACTIONS (1)
  - Influenza like illness [Unknown]
